FAERS Safety Report 7719209-4 (Version None)
Quarter: 2011Q3

REPORT INFORMATION
  Report Type: 
  Country: None (occurrence: None)
  Receive Date: 20110830
  Receipt Date: 20110822
  Transmission Date: 20111222
  Serious: Yes (Other)
  Sender: FDA-Public Use
  Company Number: VN-BAYER-2011-076494

PATIENT
  Sex: Female

DRUGS (1)
  1. MIRENA [Suspect]
     Indication: CONTRACEPTION
     Dosage: UNK
     Route: 015
     Dates: start: 20110820, end: 20110821

REACTIONS (3)
  - UTERINE PAIN [None]
  - HYPERSENSITIVITY [None]
  - FACE OEDEMA [None]
